FAERS Safety Report 12331658 (Version 1)
Quarter: 2016Q2

REPORT INFORMATION
  Report Type: Spontaneous
  Country: US (occurrence: None)
  Receive Date: 20160503
  Receipt Date: 20160503
  Transmission Date: 20160815
  Serious: Yes (Other)
  Sender: FDA-Public Use
  Company Number: None

PATIENT
  Age: 48 Year
  Sex: Female
  Weight: 113.4 kg

DRUGS (14)
  1. OXYCODONE [Concomitant]
     Active Substance: OXYCODONE
  2. FLEXERIL [Concomitant]
     Active Substance: CYCLOBENZAPRINE HYDROCHLORIDE
  3. VITAMIN C [Concomitant]
     Active Substance: ASCORBIC ACID
  4. OXYCONTIN [Concomitant]
     Active Substance: OXYCODONE HYDROCHLORIDE
  5. MULTI-VITAMIN [Concomitant]
     Active Substance: .ALPHA.-TOCOPHEROL ACETATE, DL-\ASCORBIC ACID\CYANOCOBALAMIN\FLUORIDE ION\FOLIC ACID\NIACIN\PYRIDOXINE\RIBOFLAVIN\THIAMINE\VITAMIN A\VITAMIN D
  6. SIMPONI [Concomitant]
     Active Substance: GOLIMUMAB
  7. LOVENOX [Suspect]
     Active Substance: ENOXAPARIN SODIUM
     Indication: PULMONARY EMBOLISM
     Dosage: TWICE A DAY GIVEN INTO/UNDER THE SKIN
     Route: 058
     Dates: start: 20160426, end: 20160428
  8. CALCIUM [Concomitant]
     Active Substance: CALCIUM
  9. FIBER [Concomitant]
     Active Substance: PSYLLIUM HUSK
  10. TRAMADOL. [Concomitant]
     Active Substance: TRAMADOL
  11. FOLIC ACID. [Concomitant]
     Active Substance: FOLIC ACID
  12. NORETHINDRONE. [Concomitant]
     Active Substance: NORETHINDRONE
  13. LEVOTHYROXINE. [Concomitant]
     Active Substance: LEVOTHYROXINE
  14. VITAMIN B12 [Concomitant]
     Active Substance: CYANOCOBALAMIN

REACTIONS (1)
  - Migraine [None]

NARRATIVE: CASE EVENT DATE: 20160428
